FAERS Safety Report 18504553 (Version 1)
Quarter: 2020Q4

REPORT INFORMATION
  Report Type: Spontaneous
  Country: DE (occurrence: DE)
  Receive Date: 20201114
  Receipt Date: 20201114
  Transmission Date: 20210114
  Serious: Yes (Hospitalization, Other)
  Sender: FDA-Public Use
  Company Number: NVSC2020DE299301

PATIENT
  Age: 81 Year
  Sex: Male

DRUGS (3)
  1. AMLODIPINE;BISOPROLOL [Concomitant]
     Active Substance: AMLODIPINE\BISOPROLOL
     Indication: PRODUCT USED FOR UNKNOWN INDICATION
     Dosage: 5 MG ( 1-0-1-0, TABLETTEN)
     Route: 065
  2. TORASEMID [Concomitant]
     Active Substance: TORSEMIDE
     Indication: PRODUCT USED FOR UNKNOWN INDICATION
     Dosage: 10 MG (1-0.5-0-0, TABLETTEN )
     Route: 065
  3. ASPIRIN. [Suspect]
     Active Substance: ASPIRIN
     Indication: PRODUCT USED FOR UNKNOWN INDICATION
     Dosage: 100 MG (0-1-0-0, TABLETTEN)
     Route: 065

REACTIONS (4)
  - Haematochezia [Unknown]
  - Haematemesis [Unknown]
  - Gastrointestinal haemorrhage [Unknown]
  - Anaemia [Unknown]
